FAERS Safety Report 9183127 (Version 1)
Quarter: 2013Q1

REPORT INFORMATION
  Report Type: Spontaneous
  Country: US (occurrence: US)
  Receive Date: 20130322
  Receipt Date: 20130322
  Transmission Date: 20140127
  Serious: No
  Sender: FDA-Public Use
  Company Number: US-BRISTOL-MYERS SQUIBB COMPANY-16910309

PATIENT
  Age: 67 Year
  Sex: Male

DRUGS (6)
  1. ERBITUX [Suspect]
     Dosage: NO OF TREATMENTS 3
  2. COZAAR [Concomitant]
  3. SYNTHROID [Concomitant]
  4. SIMVASTATIN [Concomitant]
  5. TENEX [Concomitant]
  6. PROTONIX [Concomitant]

REACTIONS (1)
  - Dermatitis acneiform [Unknown]
